FAERS Safety Report 21901872 (Version 13)
Quarter: 2023Q4

REPORT INFORMATION
  Report Type: Spontaneous
  Country: CA (occurrence: CA)
  Receive Date: 20230124
  Receipt Date: 20231117
  Transmission Date: 20240110
  Serious: Yes (Other)
  Sender: FDA-Public Use
  Company Number: CA-CELLTRION INC.-2022CA011036

PATIENT

DRUGS (24)
  1. INFLECTRA [Suspect]
     Active Substance: INFLIXIMAB-DYYB
     Indication: Crohn^s disease
     Dosage: 5 MG/KG WEEK 0, 2, 6 THEN Q 8 WEEKS, EVERY 8 WEEKS
     Route: 042
     Dates: start: 20220621
  2. INFLECTRA [Suspect]
     Active Substance: INFLIXIMAB-DYYB
     Dosage: 5 MG/KG WEEK 0, 2, 6 THEN Q 8 WEEKS, EVERY 8 WEEKS
     Route: 042
     Dates: start: 20220621, end: 20230216
  3. INFLECTRA [Suspect]
     Active Substance: INFLIXIMAB-DYYB
     Dosage: 5 MG/KG WEEK 0, 2, 6 THEN Q 8 WEEKS, EVERY 8 WEEKS
     Route: 042
     Dates: start: 20220707
  4. INFLECTRA [Suspect]
     Active Substance: INFLIXIMAB-DYYB
     Dosage: 5 MG/KG WEEK 0, 2, 6 THEN Q 8 WEEKS, EVERY 8 WEEKS
     Route: 042
     Dates: start: 20220729
  5. INFLECTRA [Suspect]
     Active Substance: INFLIXIMAB-DYYB
     Dosage: 5 MG/KG WEEK 0, 2, 6 THEN Q 8 WEEKS, EVERY 8 WEEKS
     Route: 042
     Dates: start: 20220923, end: 20220923
  6. INFLECTRA [Suspect]
     Active Substance: INFLIXIMAB-DYYB
     Dosage: 5 MG/KG WEEK 0, 2, 6 THEN Q 8 WEEKS, EVERY 8 WEEKS
     Route: 042
     Dates: start: 20221118
  7. INFLECTRA [Suspect]
     Active Substance: INFLIXIMAB-DYYB
     Dosage: 5 MG/KG WEEK 0, 2, 6 THEN Q 8 WEEKS, EVERY 8 WEEKS
     Route: 042
     Dates: start: 20230113, end: 20230113
  8. INFLECTRA [Suspect]
     Active Substance: INFLIXIMAB-DYYB
     Dosage: 720 MG (10 MG/KG) EVERY 4 WEEKS
     Route: 042
     Dates: start: 20230216
  9. INFLECTRA [Suspect]
     Active Substance: INFLIXIMAB-DYYB
     Dosage: 10 MG/KG, EVERY 4 WEEKS
     Route: 042
     Dates: start: 20230314
  10. INFLECTRA [Suspect]
     Active Substance: INFLIXIMAB-DYYB
     Dosage: 10 MG/KG, EVERY 4 WEEKS
     Route: 042
     Dates: start: 20230314
  11. INFLECTRA [Suspect]
     Active Substance: INFLIXIMAB-DYYB
     Dosage: 740 MG, EVERY 6 WEEKS
     Route: 042
     Dates: start: 20230425
  12. INFLECTRA [Suspect]
     Active Substance: INFLIXIMAB-DYYB
     Dosage: 10 MG/KG, EVERY 4 WEEK
     Route: 042
     Dates: start: 20230524
  13. INFLECTRA [Suspect]
     Active Substance: INFLIXIMAB-DYYB
     Dosage: 740 MG, EVERY 4 WEEK
     Route: 042
     Dates: start: 20230621, end: 20230621
  14. INFLECTRA [Suspect]
     Active Substance: INFLIXIMAB-DYYB
     Dosage: 10 MG/KG, EVERY 4 WEEKS
     Route: 042
     Dates: start: 20230720
  15. INFLECTRA [Suspect]
     Active Substance: INFLIXIMAB-DYYB
     Dosage: 730 MG (10MG/KG), EVERY 4 WEEKS
     Route: 042
     Dates: start: 20230817
  16. INFLECTRA [Suspect]
     Active Substance: INFLIXIMAB-DYYB
     Dosage: 10MG/KG (750 MG). EVERY 4 WEEKS (AFTER 3 WEEKS AND 6 DAYS)
     Route: 042
     Dates: start: 20230913
  17. INFLECTRA [Suspect]
     Active Substance: INFLIXIMAB-DYYB
     Dosage: 10 MG/KG EVERY 4 WEEKS (750MG AFTER 4 WEEKS AND 1 DAY)
     Route: 042
     Dates: start: 20231012
  18. INFLECTRA [Suspect]
     Active Substance: INFLIXIMAB-DYYB
     Dosage: 10 MG/KG EVERY 4 WEEKS (740 MG, 3 WEEKS AND 6 DAYS)
     Route: 042
     Dates: start: 20231108
  19. ALESSE 28 [Concomitant]
     Active Substance: ETHINYL ESTRADIOL\LEVONORGESTREL
     Dosage: 1 DF
     Route: 048
  20. GLICLAZIDE [Concomitant]
     Active Substance: GLICLAZIDE
     Dosage: 90 MG, DAILY
     Route: 048
  21. GLICLAZIDE [Concomitant]
     Active Substance: GLICLAZIDE
     Dosage: 90 MG, 1X/DAY
     Route: 048
  22. HEPATITIS A VACCINE;HEPATITIS B VACCINE [Concomitant]
     Indication: Hepatitis immunisation
     Dosage: UNK, SINGLE
     Dates: start: 202304, end: 202304
  23. MESALAMINE [Concomitant]
     Active Substance: MESALAMINE
     Dosage: 1 DF
     Route: 065
  24. PNEUMOCOCCAL VACCINE POLYVALENT NOS [Concomitant]
     Active Substance: PNEUMOCOCCAL VACCINE POLYVALENT
     Indication: Pneumococcal immunisation
     Dosage: UNK, SINGLE
     Dates: start: 202304, end: 202304

REACTIONS (10)
  - Condition aggravated [Recovered/Resolved]
  - Fatigue [Not Recovered/Not Resolved]
  - Hot flush [Unknown]
  - Blood glucose decreased [Unknown]
  - Headache [Not Recovered/Not Resolved]
  - Blood pressure fluctuation [Not Recovered/Not Resolved]
  - Migraine [Not Recovered/Not Resolved]
  - Off label use [Unknown]
  - Off label use [Unknown]
  - Intentional product use issue [Unknown]

NARRATIVE: CASE EVENT DATE: 20220621
